FAERS Safety Report 19024773 (Version 2)
Quarter: 2021Q2

REPORT INFORMATION
  Report Type: Report from Study
  Country: US (occurrence: US)
  Receive Date: 20210318
  Receipt Date: 20210521
  Transmission Date: 20210717
  Serious: Yes (Hospitalization, Other)
  Sender: FDA-Public Use
  Company Number: US-AMGEN-USASL2021017297

PATIENT
  Age: 62 Year
  Sex: Female

DRUGS (1)
  1. ENBREL [Suspect]
     Active Substance: ETANERCEPT
     Indication: RHEUMATOID ARTHRITIS
     Dosage: 50 MILLIGRAM, QWK
     Route: 065
     Dates: start: 202101

REACTIONS (10)
  - Blood pressure decreased [Unknown]
  - Malaise [Unknown]
  - Injection site rash [Unknown]
  - Syncope [Unknown]
  - Central nervous system lesion [Unknown]
  - Injection site erythema [Not Recovered/Not Resolved]
  - Dizziness [Unknown]
  - Injection site irritation [Not Recovered/Not Resolved]
  - Injection site reaction [Not Recovered/Not Resolved]
  - Illness [Unknown]

NARRATIVE: CASE EVENT DATE: 2021
